FAERS Safety Report 6377913-7 (Version None)
Quarter: 2009Q3

REPORT INFORMATION
  Report Type: 
  Country: None (occurrence: None)
  Receive Date: 20090925
  Receipt Date: 20090916
  Transmission Date: 20100115
  Serious: Yes (Hospitalization)
  Sender: FDA-Public Use
  Company Number: PHHY2009CL39878

PATIENT
  Age: 71 Year
  Sex: Female

DRUGS (6)
  1. TAREG [Suspect]
     Indication: HYPERTENSION
     Dosage: 1 DF (80 MG) PER DAY
  2. LEXAPRO [Concomitant]
  3. CRESTOR [Concomitant]
  4. UREN [Concomitant]
  5. PLAQUINOL [Concomitant]
  6. SUPRADYN [Concomitant]

REACTIONS (2)
  - CARPAL TUNNEL DECOMPRESSION [None]
  - SPINAL OPERATION [None]
